FAERS Safety Report 8518304 (Version 3)
Quarter: 2013Q2

REPORT INFORMATION
  Report Type: Spontaneous
  Country: US (occurrence: US)
  Receive Date: 20120417
  Receipt Date: 20130509
  Transmission Date: 20140414
  Serious: Yes (Hospitalization)
  Sender: FDA-Public Use
  Company Number: US-ASTRAZENECA-2011SE59532

PATIENT
  Age: 60 Year
  Sex: Female
  Weight: 99.8 kg

DRUGS (15)
  1. NEXIUM [Suspect]
     Indication: HIATUS HERNIA
     Route: 048
  2. SEROQUEL [Suspect]
     Indication: INSOMNIA
     Route: 048
  3. SEROQUEL [Suspect]
     Indication: SCHIZOPHRENIA
     Route: 048
  4. SEROQUEL [Suspect]
     Indication: INSOMNIA
     Route: 048
  5. SEROQUEL [Suspect]
     Indication: SCHIZOPHRENIA
     Route: 048
  6. SEROQUEL [Suspect]
     Indication: INSOMNIA
     Route: 048
     Dates: start: 201107
  7. SEROQUEL [Suspect]
     Indication: SCHIZOPHRENIA
     Route: 048
     Dates: start: 201107
  8. ASPIRIN [Suspect]
     Route: 065
  9. CELEXA [Concomitant]
     Indication: DEPRESSION
  10. CITALOPRAM [Concomitant]
     Indication: DEPRESSION
     Route: 048
  11. CITALOPRAM [Concomitant]
     Indication: DEPRESSION
     Route: 048
  12. ATENOLOL [Concomitant]
     Indication: BLOOD PRESSURE
     Route: 048
  13. FIRONOHTE [Concomitant]
  14. OMEPRAZOLE [Concomitant]
     Indication: GASTRIC PH DECREASED
     Route: 048
  15. FIPIRONO HCTZ [Concomitant]
     Indication: POLYURIA
     Route: 048

REACTIONS (7)
  - Psychotic disorder [Unknown]
  - Hallucination, auditory [Not Recovered/Not Resolved]
  - Hallucination, visual [Unknown]
  - Intentional drug misuse [Unknown]
  - Off label use [Unknown]
  - Drug ineffective [Unknown]
  - Drug hypersensitivity [Unknown]
